FAERS Safety Report 4389714-X (Version None)
Quarter: 2004Q2

REPORT INFORMATION
  Report Type: 
  Country: None (occurrence: None)
  Receive Date: 20040629
  Receipt Date: 20030813
  Transmission Date: 20050107
  Serious: Yes (Other)
  Sender: FDA-Public Use
  Company Number: US-JNJFOC-20030803123

PATIENT
  Age: 66 Year
  Sex: Female

DRUGS (3)
  1. DURAGESIC [Suspect]
     Indication: PAIN
     Dosage: 50 UG/HR, 1 IN 72 HOUR, TRANSDERMAL : 75 UG/HR, 1 IN 72 HOUR, TRANSDERMAL
     Route: 062
     Dates: start: 20030601, end: 20030701
  2. DILAUDID [Concomitant]
  3. PERCOCET [Concomitant]

REACTIONS (2)
  - RESPIRATORY DEPRESSION [None]
  - THERAPEUTIC RESPONSE DECREASED [None]
